FAERS Safety Report 12784467 (Version 2)
Quarter: 2016Q3

REPORT INFORMATION
  Report Type: Spontaneous
  Country: US (occurrence: US)
  Receive Date: 20160927
  Receipt Date: 20160929
  Transmission Date: 20161109
  Serious: Yes (Hospitalization, Other)
  Sender: FDA-Public Use
  Company Number: US-SAOL THERAPEUTICS-2016SAO00696

PATIENT
  Sex: Female

DRUGS (4)
  1. BACLOFEN. [Suspect]
     Active Substance: BACLOFEN
     Indication: MUSCLE SPASTICITY
     Dosage: 110 ?G, \DAY
  2. PROZAC [Concomitant]
     Active Substance: FLUOXETINE HYDROCHLORIDE
  3. BACLOFEN. [Suspect]
     Active Substance: BACLOFEN
     Indication: HEREDITARY SPASTIC PARAPLEGIA
     Dosage: 145 ?G, \DAY
     Route: 037
  4. LAMICTAL [Concomitant]
     Active Substance: LAMOTRIGINE

REACTIONS (9)
  - Therapy non-responder [Unknown]
  - Arthralgia [Unknown]
  - Syncope [Unknown]
  - Pain [Unknown]
  - Back pain [Unknown]
  - Clonus [Unknown]
  - Muscle spasticity [Unknown]
  - Device dislocation [Recovered/Resolved]
  - Presyncope [Unknown]

NARRATIVE: CASE EVENT DATE: 2016
